FAERS Safety Report 5948414-2 (Version None)
Quarter: 2008Q4

REPORT INFORMATION
  Report Type: 
  Country: None (occurrence: None)
  Receive Date: 20081111
  Receipt Date: 20081111
  Transmission Date: 20090506
  Serious: Yes (Other)
  Sender: FDA-Public Use
  Company Number: A0755781A

PATIENT
  Age: 62 Year
  Sex: Female

DRUGS (1)
  1. NICORETTE [Suspect]
     Indication: SMOKING CESSATION THERAPY
     Dosage: 40GUM PER DAY
     Route: 002

REACTIONS (3)
  - DEPENDENCE [None]
  - INTENTIONAL DRUG MISUSE [None]
  - OVERDOSE [None]
